FAERS Safety Report 14878830 (Version 1)
Quarter: 2018Q2

REPORT INFORMATION
  Report Type: Spontaneous
  Country: NZ (occurrence: NZ)
  Receive Date: 20180511
  Receipt Date: 20180511
  Transmission Date: 20180711
  Serious: Yes (Other)
  Sender: FDA-Public Use
  Company Number: NZ-ABBVIE-18S-118-2350833-00

PATIENT

DRUGS (1)
  1. EPILIM [Suspect]
     Active Substance: VALPROATE SODIUM
     Indication: MATERNAL EXPOSURE TIMING UNSPECIFIED
     Route: 064

REACTIONS (4)
  - Foetal growth abnormality [Unknown]
  - Abnormal behaviour [Unknown]
  - Foetal exposure during pregnancy [Unknown]
  - Neurodevelopmental disorder [Unknown]
